FAERS Safety Report 16834721 (Version 1)
Quarter: 2019Q3

REPORT INFORMATION
  Report Type: Spontaneous
  Country: US (occurrence: US)
  Receive Date: 20190920
  Receipt Date: 20190920
  Transmission Date: 20191005
  Serious: No
  Sender: FDA-Public Use
  Company Number: US-PFIZER INC-2019403254

PATIENT
  Age: 85 Year
  Sex: Male
  Weight: 79.38 kg

DRUGS (1)
  1. TOVIAZ [Suspect]
     Active Substance: FESOTERODINE FUMARATE
     Indication: BLADDER DISORDER
     Dosage: 4 MG, 1X/DAY(1 TABLET BY MOUTH EVERYDAY AT 5PM)
     Route: 048
     Dates: start: 20190729

REACTIONS (2)
  - Catheter site pain [Unknown]
  - Catheter site extravasation [Unknown]
